FAERS Safety Report 7449599-1 (Version None)
Quarter: 2011Q2

REPORT INFORMATION
  Report Type: 
  Country: None (occurrence: None)
  Receive Date: 20110502
  Receipt Date: 20110419
  Transmission Date: 20111010
  Serious: Yes (Other)
  Sender: FDA-Public Use
  Company Number: US-BAYER-2011-034712

PATIENT
  Age: 31 Year
  Sex: Female

DRUGS (1)
  1. MIRENA [Suspect]
     Indication: CONTRACEPTION
     Dosage: UNK
     Route: 015
     Dates: start: 20100101

REACTIONS (5)
  - DEVICE DISLOCATION [None]
  - HEADACHE [None]
  - DYSPAREUNIA [None]
  - COMPLICATION OF DEVICE REMOVAL [None]
  - DIZZINESS [None]
